FAERS Safety Report 7237329-8 (Version None)
Quarter: 2011Q1

REPORT INFORMATION
  Report Type: 
  Country: None (occurrence: None)
  Receive Date: 20110111
  Receipt Date: 20101227
  Transmission Date: 20110831
  Serious: Yes (Other)
  Sender: FDA-Public Use
  Company Number: IN-ACCORD-007689

PATIENT
  Age: 46 Year
  Sex: Female

DRUGS (1)
  1. TOPIRAMATE [Suspect]
     Indication: WEIGHT DECREASED
     Dosage: 25.00-MG.1.0DAYS

REACTIONS (4)
  - OFF LABEL USE [None]
  - SEDATION [None]
  - COGNITIVE DISORDER [None]
  - REPETITIVE SPEECH [None]
